FAERS Safety Report 7503958-7 (Version None)
Quarter: 2011Q2

REPORT INFORMATION
  Report Type: 
  Country: None (occurrence: None)
  Receive Date: 20110518
  Receipt Date: 20110506
  Transmission Date: 20111010
  Serious: Yes (Other)
  Sender: FDA-Public Use
  Company Number: LTI2011A00112

PATIENT
  Age: 55 Year
  Sex: Male

DRUGS (4)
  1. ACTOS [Suspect]
     Indication: TYPE 2 DIABETES MELLITUS
     Dosage: 1 TAB. (1 TAB. 1 IN 1 D), ORAL
     Route: 048
     Dates: end: 20110401
  2. DIAMICRON (GLICLAZIDE) [Concomitant]
  3. NEXIUM [Concomitant]
  4. STAGID (METFORMIN EMBONATE) [Concomitant]

REACTIONS (2)
  - MICROCYTIC ANAEMIA [None]
  - MYELOPROLIFERATIVE DISORDER [None]
